FAERS Safety Report 8532525-1 (Version None)
Quarter: 2012Q3

REPORT INFORMATION
  Report Type: 
  Country: None (occurrence: None)
  Receive Date: 20120724
  Receipt Date: 20120717
  Transmission Date: 20120928
  Serious: No
  Sender: FDA-Public Use
  Company Number: US-PFIZER INC-2012173611

PATIENT
  Sex: Female

DRUGS (3)
  1. INSULIN [Concomitant]
     Dosage: UNK
  2. CREON [Concomitant]
     Dosage: UNK
  3. SUTENT [Suspect]
     Indication: PANCREATIC NEUROENDOCRINE TUMOUR
     Dosage: 12.5 MG, 3X/DAY
     Dates: start: 20120711

REACTIONS (8)
  - CHEST DISCOMFORT [None]
  - COUGH [None]
  - HAEMATURIA [None]
  - PYREXIA [None]
  - DYSPNOEA [None]
  - PAIN [None]
  - NAUSEA [None]
  - CHILLS [None]
